FAERS Safety Report 11383268 (Version 1)
Quarter: 2015Q3

REPORT INFORMATION
  Report Type: Spontaneous
  Country: US (occurrence: US)
  Receive Date: 20150814
  Receipt Date: 20150814
  Transmission Date: 20151125
  Serious: No
  Sender: FDA-Public Use
  Company Number: GXBR2015US001160

PATIENT
  Sex: Female

DRUGS (1)
  1. PHENDIMETRAZINE TARTRATE TABLETS USP [Suspect]
     Active Substance: PHENDIMETRAZINE TARTRATE
     Indication: PRODUCT USED FOR UNKNOWN INDICATION
     Dosage: 35 MG, UNK
     Route: 048

REACTIONS (1)
  - Drug ineffective [Unknown]
